FAERS Safety Report 7533991-0 (Version None)
Quarter: 2011Q2

REPORT INFORMATION
  Report Type: 
  Country: None (occurrence: None)
  Receive Date: 20110608
  Receipt Date: 20060809
  Transmission Date: 20111010
  Serious: Yes (Hospitalization)
  Sender: FDA-Public Use
  Company Number: PHFR2006IE02417

PATIENT
  Sex: Male

DRUGS (7)
  1. AMITRIPTYLINE HYDROCHLORIDE [Concomitant]
     Route: 065
  2. ASPIRIN [Concomitant]
     Route: 065
  3. LITHIUM CARBONATE [Concomitant]
     Route: 065
  4. FLOXACILLIN SODIUM [Concomitant]
     Route: 065
  5. PRAVASTATIN [Concomitant]
     Route: 065
  6. PIPERACILLIN SODIUM [Concomitant]
     Route: 065
  7. CLOZAPINE [Suspect]
     Indication: SCHIZOPHRENIA
     Route: 048
     Dates: start: 20050225

REACTIONS (2)
  - SEPSIS [None]
  - HERNIA [None]
